FAERS Safety Report 22164025 (Version 17)
Quarter: 2025Q3

REPORT INFORMATION
  Report Type: Report from Study
  Country: BR (occurrence: BR)
  Receive Date: 20230402
  Receipt Date: 20250923
  Transmission Date: 20251021
  Serious: Yes (Hospitalization, Other)
  Sender: NOVARTIS
  Company Number: BR-002147023-NVSC2023BR011602

PATIENT
  Age: 44 Year
  Sex: Female

DRUGS (19)
  1. KISQALI [Suspect]
     Active Substance: RIBOCICLIB SUCCINATE
     Indication: Breast cancer
     Dosage: 3 DOSAGE FORM, QD
     Route: 065
  2. KISQALI [Suspect]
     Active Substance: RIBOCICLIB SUCCINATE
     Route: 065
     Dates: start: 202211
  3. KISQALI [Suspect]
     Active Substance: RIBOCICLIB SUCCINATE
     Route: 065
  4. KISQALI [Suspect]
     Active Substance: RIBOCICLIB SUCCINATE
     Route: 065
  5. KISQALI [Suspect]
     Active Substance: RIBOCICLIB SUCCINATE
     Route: 065
  6. KISQALI [Suspect]
     Active Substance: RIBOCICLIB SUCCINATE
     Route: 065
     Dates: start: 20240302
  7. KISQALI [Suspect]
     Active Substance: RIBOCICLIB SUCCINATE
     Route: 065
  8. KISQALI [Suspect]
     Active Substance: RIBOCICLIB SUCCINATE
     Dosage: 3 DOSAGE FORM, QD
     Route: 065
  9. KISQALI [Suspect]
     Active Substance: RIBOCICLIB SUCCINATE
     Route: 065
     Dates: start: 20240728, end: 20240807
  10. KISQALI [Suspect]
     Active Substance: RIBOCICLIB SUCCINATE
     Route: 065
     Dates: start: 20240815, end: 20240904
  11. KISQALI [Suspect]
     Active Substance: RIBOCICLIB SUCCINATE
     Dosage: 600 MG, QD (3 TABLETS, ONCE A DAY, FOR 21 CONSECUTIVE DAYS, WITH A 7-DAY BREAK)
     Route: 048
     Dates: start: 20240827
  12. KISQALI [Suspect]
     Active Substance: RIBOCICLIB SUCCINATE
     Route: 065
  13. KISQALI [Suspect]
     Active Substance: RIBOCICLIB SUCCINATE
     Route: 065
     Dates: start: 20250227
  14. KISQALI [Suspect]
     Active Substance: RIBOCICLIB SUCCINATE
     Route: 065
  15. ZOMETA [Suspect]
     Active Substance: ZOLEDRONIC ACID
     Indication: Product used for unknown indication
     Route: 065
  16. ANASTROZOLE [Suspect]
     Active Substance: ANASTROZOLE
     Indication: Product used for unknown indication
     Route: 065
  17. AMOXICILLIN [Concomitant]
     Active Substance: AMOXICILLIN
     Indication: Wisdom teeth removal
     Route: 065
  18. Saccharomyces medicinalis [Concomitant]
     Indication: Dysbiosis
     Route: 065
  19. LOPERAMIDE [Concomitant]
     Active Substance: LOPERAMIDE
     Indication: Dysbiosis
     Route: 065

REACTIONS (45)
  - Dehydration [Recovered/Resolved]
  - Diarrhoea [Recovered/Resolved]
  - Vomiting [Recovered/Resolved]
  - Abdominal pain upper [Not Recovered/Not Resolved]
  - Dizziness [Recovered/Resolved]
  - Nausea [Recovered/Resolved]
  - Feeding disorder [Recovered/Resolved]
  - Decreased immune responsiveness [Unknown]
  - Metastases to pelvis [Unknown]
  - Nail disorder [Unknown]
  - Alopecia [Unknown]
  - Influenza [Recovered/Resolved]
  - Pain [Unknown]
  - Discomfort [Recovering/Resolving]
  - Skin irritation [Unknown]
  - Skin hypertrophy [Unknown]
  - Feeling abnormal [Unknown]
  - Abdominal discomfort [Recovering/Resolving]
  - Arthralgia [Unknown]
  - Pelvic pain [Unknown]
  - Retching [Unknown]
  - Pruritus [Unknown]
  - Illness [Recovering/Resolving]
  - Malaise [Recovered/Resolved]
  - Weight decreased [Recovering/Resolving]
  - Decreased appetite [Unknown]
  - Headache [Recovered/Resolved]
  - Asthenia [Recovered/Resolved]
  - Oropharyngeal pain [Unknown]
  - Drug intolerance [Unknown]
  - Candida infection [Recovering/Resolving]
  - Pruritus [Recovering/Resolving]
  - Burning sensation [Recovering/Resolving]
  - Impaired healing [Unknown]
  - Chloasma [Not Recovered/Not Resolved]
  - Pigmentation disorder [Not Recovered/Not Resolved]
  - Urinary tract infection [Recovered/Resolved]
  - Feeding disorder [Recovered/Resolved]
  - Viral infection [Recovered/Resolved]
  - Memory impairment [Not Recovered/Not Resolved]
  - Malaise [Recovered/Resolved]
  - Asthenia [Recovered/Resolved]
  - Headache [Recovered/Resolved]
  - Influenza [Recovering/Resolving]
  - Confusional state [Unknown]

NARRATIVE: CASE EVENT DATE: 20221219
